FAERS Safety Report 14092802 (Version 9)
Quarter: 2018Q2

REPORT INFORMATION
  Report Type: Report from Study
  Country: CA (occurrence: CA)
  Receive Date: 20171016
  Receipt Date: 20180608
  Transmission Date: 20180711
  Serious: Yes (Other)
  Sender: FDA-Public Use
  Company Number: CA-GLAXOSMITHKLINE-CA2017GSK157299

PATIENT
  Age: 60 Year
  Sex: Female

DRUGS (2)
  1. MEPOLIZUMAB [Suspect]
     Active Substance: MEPOLIZUMAB
     Dosage: 100 MG, Z
     Route: 042
  2. MEPOLIZUMAB [Suspect]
     Active Substance: MEPOLIZUMAB
     Indication: ASTHMA
     Dosage: 100 MG, Z (MONTHLY)
     Route: 042

REACTIONS (10)
  - Sputum discoloured [Recovered/Resolved]
  - Sinusitis [Unknown]
  - Lung infection [Unknown]
  - Disease recurrence [Unknown]
  - Productive cough [Recovered/Resolved]
  - Dental implantation [Recovering/Resolving]
  - Bronchitis [Unknown]
  - Lower respiratory tract congestion [Unknown]
  - Rhinorrhoea [Recovered/Resolved]
  - Lower respiratory tract infection [Unknown]

NARRATIVE: CASE EVENT DATE: 201803
